FAERS Safety Report 4727134-6 (Version None)
Quarter: 2005Q3

REPORT INFORMATION
  Report Type: 
  Country: None (occurrence: None)
  Receive Date: 20050726
  Receipt Date: 20050726
  Transmission Date: 20060218
  Serious: Yes (Other)
  Sender: FDA-Public Use
  Company Number: None

PATIENT
  Age: 83 Year
  Sex: Male
  Weight: 68.9 kg

DRUGS (6)
  1. NIFEDIPINE [Suspect]
  2. ADALAT CC [Concomitant]
  3. LISINOPRIL [Concomitant]
  4. METOPROLOL [Concomitant]
  5. HYDROXYUREA [Concomitant]
  6. BACITRACIN [Concomitant]

REACTIONS (1)
  - RASH [None]
